FAERS Safety Report 12503374 (Version 1)
Quarter: 2016Q2

REPORT INFORMATION
  Report Type: Spontaneous
  Country: US (occurrence: US)
  Receive Date: 20160628
  Receipt Date: 20160628
  Transmission Date: 20160815
  Serious: No
  Sender: FDA-Public Use
  Company Number: US-ASTRAZENECA-2016SE66978

PATIENT
  Age: 12640 Day
  Sex: Female
  Weight: 54 kg

DRUGS (11)
  1. SEROQUEL [Suspect]
     Active Substance: QUETIAPINE FUMARATE
     Indication: ANXIETY
     Route: 048
     Dates: start: 1997
  2. SEROQUEL [Suspect]
     Active Substance: QUETIAPINE FUMARATE
     Indication: INSOMNIA
     Route: 048
     Dates: start: 1997
  3. PRENATAL VITAMINS [Concomitant]
     Active Substance: VITAMINS
  4. SEROQUEL [Suspect]
     Active Substance: QUETIAPINE FUMARATE
     Indication: ANGER
     Route: 048
     Dates: start: 1997
  5. SEROQUEL [Suspect]
     Active Substance: QUETIAPINE FUMARATE
     Indication: ANGER
     Dosage: 25.0MG AS REQUIRED
     Route: 048
     Dates: start: 1997, end: 20160611
  6. SEROQUEL [Suspect]
     Active Substance: QUETIAPINE FUMARATE
     Indication: EMOTIONAL DISORDER
     Route: 048
     Dates: start: 1997
  7. SEROQUEL [Suspect]
     Active Substance: QUETIAPINE FUMARATE
     Indication: ANXIETY
     Dosage: 25.0MG AS REQUIRED
     Route: 048
     Dates: start: 1997, end: 20160611
  8. SEROQUEL [Suspect]
     Active Substance: QUETIAPINE FUMARATE
     Indication: EMOTIONAL DISORDER
     Dosage: 25.0MG AS REQUIRED
     Route: 048
     Dates: start: 1997, end: 20160611
  9. METHADONE [Concomitant]
     Active Substance: METHADONE HYDROCHLORIDE
     Indication: AFFECTIVE DISORDER
     Route: 065
     Dates: start: 2008
  10. SEROQUEL [Suspect]
     Active Substance: QUETIAPINE FUMARATE
     Indication: INSOMNIA
     Dosage: 25.0MG AS REQUIRED
     Route: 048
     Dates: start: 1997, end: 20160611
  11. DOXEPIN [Concomitant]
     Active Substance: DOXEPIN
     Indication: SUPPLEMENTATION THERAPY
     Route: 065
     Dates: start: 2014

REACTIONS (14)
  - Agitation [Unknown]
  - Eating disorder [Unknown]
  - Tachyphrenia [Unknown]
  - Nausea [Unknown]
  - Product use issue [Unknown]
  - Muscle spasms [Unknown]
  - Intentional product misuse [Unknown]
  - Drug dose omission [Unknown]
  - Sleep disorder [Unknown]
  - Drug withdrawal syndrome [Unknown]
  - Insomnia [Unknown]
  - Vomiting [Unknown]
  - Exposure during pregnancy [Unknown]
  - Weight decreased [Unknown]

NARRATIVE: CASE EVENT DATE: 1997
